FAERS Safety Report 20523025 (Version 1)
Quarter: 2022Q1

REPORT INFORMATION
  Report Type: Spontaneous
  Country: GB (occurrence: GB)
  Receive Date: 20220227
  Receipt Date: 20220227
  Transmission Date: 20220423
  Serious: Yes (Hospitalization, Disabling)
  Sender: FDA-Public Use
  Company Number: None

PATIENT
  Sex: Male

DRUGS (7)
  1. CLOPIDOGREL [Suspect]
     Active Substance: CLOPIDOGREL BISULFATE
     Indication: Cerebrovascular accident
     Dosage: 75 MG OD
  2. ATORVASTATIN [Concomitant]
     Active Substance: ATORVASTATIN
  3. CARBOCYSTEINE [Concomitant]
     Active Substance: CARBOCYSTEINE
  4. ALBUTEROL [Concomitant]
     Active Substance: ALBUTEROL
  5. SOLIFENACIN SUCCINATE [Concomitant]
     Active Substance: SOLIFENACIN SUCCINATE
  6. TAMSULOSIN [Concomitant]
     Active Substance: TAMSULOSIN
  7. BECLOMETASONE, FORMOTEROL, GLYCOPYRRONIUM [Concomitant]

REACTIONS (3)
  - Subarachnoid haemorrhage [Unknown]
  - Dizziness [Unknown]
  - Fall [Unknown]
